FAERS Safety Report 18252122 (Version 1)
Quarter: 2020Q3

REPORT INFORMATION
  Report Type: Spontaneous
  Country: US (occurrence: US)
  Receive Date: 20200909
  Receipt Date: 20200909
  Transmission Date: 20201103
  Serious: Yes (Life-Threatening, Hospitalization, Disabling, Other)
  Sender: FDA-Public Use
  Company Number: None

PATIENT
  Age: 24 Year
  Sex: Female
  Weight: 78 kg

DRUGS (2)
  1. OVA TOSTA [Suspect]
     Active Substance: HOMEOPATHICS
     Indication: POLYCYSTIC OVARIES
     Route: 048
  2. OVA TOSTA [Suspect]
     Active Substance: HOMEOPATHICS
     Indication: PAIN
     Route: 048

REACTIONS (17)
  - Hypotension [None]
  - Chromaturia [None]
  - Vomiting [None]
  - International normalised ratio increased [None]
  - Decreased appetite [None]
  - Hepatic failure [None]
  - Coagulopathy [None]
  - Multiple sclerosis [None]
  - Liver transplant [None]
  - Nausea [None]
  - Malaise [None]
  - Ammonia increased [None]
  - Toxicity to various agents [None]
  - Incorrect dose administered [None]
  - Hepatitis [None]
  - Hepatic encephalopathy [None]
  - Fatigue [None]

NARRATIVE: CASE EVENT DATE: 20200717
